FAERS Safety Report 10590268 (Version 3)
Quarter: 2014Q4

REPORT INFORMATION
  Report Type: Report from Study
  Country: CA (occurrence: CA)
  Receive Date: 20141118
  Receipt Date: 20141230
  Transmission Date: 20150529
  Serious: Yes (Life-Threatening, Hospitalization)
  Sender: FDA-Public Use
  Company Number: CA-CELGENE-028-C5013-14055843

PATIENT
  Age: 79 Year
  Sex: Male
  Weight: 83.1 kg

DRUGS (49)
  1. CETIRIZINE HYDROCHLORIDE. [Concomitant]
     Active Substance: CETIRIZINE HYDROCHLORIDE
     Indication: PROPHYLAXIS
     Dosage: 5 MILLIGRAM
     Route: 048
     Dates: start: 20140331
  2. OXAZEPAM. [Concomitant]
     Active Substance: OXAZEPAM
     Indication: INSOMNIA
     Dosage: 875 MILLIGRAM
     Route: 048
     Dates: start: 20131102
  3. CRESTOR [Concomitant]
     Active Substance: ROSUVASTATIN CALCIUM
     Indication: DYSLIPIDAEMIA
     Route: 048
     Dates: start: 1998
  4. POTASSIUM CHLORIDE. [Concomitant]
     Active Substance: POTASSIUM CHLORIDE
     Indication: HYPOKALAEMIA
     Route: 048
     Dates: start: 20140605, end: 20140624
  5. ZOFRAN [Concomitant]
     Active Substance: ONDANSETRON HYDROCHLORIDE
     Route: 048
     Dates: start: 20140606, end: 20140606
  6. COLACE [Concomitant]
     Active Substance: DOCUSATE SODIUM
     Indication: CONSTIPATION
     Route: 048
     Dates: start: 20140609, end: 20140620
  7. AZACITIDINE INJECTABLE [Suspect]
     Active Substance: AZACITIDINE
     Route: 058
     Dates: start: 20140505, end: 20140511
  8. AZACITIDINE INJECTABLE [Suspect]
     Active Substance: AZACITIDINE
     Route: 058
     Dates: start: 20140630
  9. DIPHENHYDRAMINE [Concomitant]
     Active Substance: DIPHENHYDRAMINE
     Indication: TRANSFUSION
     Dosage: 25-50MG
     Route: 041
     Dates: start: 20131031
  10. FUROSEMIDE. [Concomitant]
     Active Substance: FUROSEMIDE
     Indication: FLUID OVERLOAD
     Dosage: 100 MILLIGRAM
     Route: 041
     Dates: start: 20140603, end: 20140603
  11. AZACITIDINE INJECTABLE [Suspect]
     Active Substance: AZACITIDINE
     Indication: ACUTE MYELOID LEUKAEMIA
     Route: 058
     Dates: start: 20131101, end: 20131107
  12. AZACITIDINE INJECTABLE [Suspect]
     Active Substance: AZACITIDINE
     Route: 058
     Dates: start: 2014, end: 20140616
  13. FUROSEMIDE. [Concomitant]
     Active Substance: FUROSEMIDE
     Route: 041
     Dates: start: 20140609, end: 20140609
  14. CEPHALEXIN. [Concomitant]
     Active Substance: CEPHALEXIN
     Indication: CELLULITIS
     Route: 041
     Dates: start: 20140613, end: 20140621
  15. CHLORPHENIRAMINE AND HYDROCODONE [Concomitant]
     Indication: COUGH
     Route: 048
     Dates: start: 20140625, end: 20140630
  16. DIGOXIN. [Concomitant]
     Active Substance: DIGOXIN
     Indication: ATRIAL FIBRILLATION
     Dosage: 1800 MILLIGRAM
     Route: 048
     Dates: start: 20140617, end: 20140617
  17. DIGOXIN. [Concomitant]
     Active Substance: DIGOXIN
     Route: 048
     Dates: start: 20140617, end: 20140620
  18. SALBUTAMOL [Concomitant]
     Active Substance: ALBUTEROL
     Indication: COUGH
     Dosage: 2 PUFFS
     Route: 055
     Dates: start: 20140625, end: 20140630
  19. CC-5013 [Suspect]
     Active Substance: LENALIDOMIDE
     Indication: ACUTE MYELOID LEUKAEMIA
     Route: 048
     Dates: start: 20131108, end: 20131128
  20. CC-5013 [Suspect]
     Active Substance: LENALIDOMIDE
     Route: 048
     Dates: start: 20140707
  21. POLYETHYLENE GLYCOL 3350. [Concomitant]
     Active Substance: POLYETHYLENE GLYCOL 3350
     Route: 048
     Dates: start: 20140607
  22. FUROSEMIDE. [Concomitant]
     Active Substance: FUROSEMIDE
     Route: 041
     Dates: start: 20140606, end: 20140607
  23. FUROSEMIDE. [Concomitant]
     Active Substance: FUROSEMIDE
     Dosage: 200 MILLIGRAM
     Route: 041
     Dates: start: 20140610, end: 20140610
  24. CRESTOR [Concomitant]
     Active Substance: ROSUVASTATIN CALCIUM
     Indication: HYPERCHOLESTEROLAEMIA
  25. ACETAMINOPHEN. [Concomitant]
     Active Substance: ACETAMINOPHEN
     Indication: TRANSFUSION
     Route: 048
     Dates: start: 20131031
  26. MAGNESIUM SULFATE. [Concomitant]
     Active Substance: MAGNESIUM SULFATE
     Indication: HYPOMAGNESAEMIA
     Route: 041
     Dates: start: 20140530, end: 20140530
  27. MAGNESIUM SULFATE. [Concomitant]
     Active Substance: MAGNESIUM SULFATE
     Indication: ATRIAL FIBRILLATION
     Route: 048
     Dates: start: 20140606, end: 20140606
  28. VITAMIN K [Concomitant]
     Active Substance: PHYTONADIONE
     Route: 048
     Dates: start: 20140606, end: 20140606
  29. VITAMIN K [Concomitant]
     Active Substance: PHYTONADIONE
     Route: 048
     Dates: start: 20140612, end: 20140612
  30. NORMAL SALINE WITH POTASSIUM CHLORIDE [Concomitant]
     Indication: HYPOKALAEMIA
     Dosage: 40 MEQ/100CC
     Route: 041
     Dates: start: 20140531, end: 20140602
  31. SODIUM PHOSPHATE [Concomitant]
     Active Substance: SODIUM PHOSPHATE
     Indication: HYPOPHOSPHATAEMIA
     Route: 041
     Dates: start: 20140606, end: 20140606
  32. FLUCONAZOLE. [Concomitant]
     Active Substance: FLUCONAZOLE
     Indication: ORAL FUNGAL INFECTION
     Dosage: 200 MICROGRAM
     Route: 048
     Dates: start: 20140611, end: 20140616
  33. CODEINE [Concomitant]
     Active Substance: CODEINE
     Indication: COUGH
     Route: 048
     Dates: start: 20140622, end: 20140624
  34. DIMENHYDRINATE. [Concomitant]
     Active Substance: DIMENHYDRINATE
     Indication: NAUSEA
     Route: 048
     Dates: start: 20140601
  35. CC-5013 [Suspect]
     Active Substance: LENALIDOMIDE
     Route: 048
     Dates: start: 20140512, end: 20140528
  36. VITAMIN K [Concomitant]
     Active Substance: PHYTONADIONE
     Route: 048
     Dates: start: 20140609, end: 20140609
  37. FUROSEMIDE. [Concomitant]
     Active Substance: FUROSEMIDE
     Route: 041
     Dates: start: 20140605, end: 20140605
  38. CLINDAMYCIN [Concomitant]
     Active Substance: CLINDAMYCIN\CLINDAMYCIN PHOSPHATE
     Indication: CELLULITIS
     Route: 048
     Dates: start: 20140612, end: 20140613
  39. PEGYLATED INTERFERON ALPHA NOS [Concomitant]
     Active Substance: PEGINTERFERON ALFA-2A OR PEGINTERFERON ALFA-2B
     Indication: CONSTIPATION
     Dosage: 13.5 MILLIGRAM
     Route: 048
     Dates: start: 20140206
  40. AMOXICILLIN/CLAVULANATE POTASSIUM [Concomitant]
     Active Substance: AMOXICILLIN\CLAVULANATE POTASSIUM
     Indication: SIALOADENITIS
     Route: 065
     Dates: start: 20140509, end: 20140519
  41. AMOXICILLIN/CLAVULANATE POTASSIUM [Concomitant]
     Active Substance: AMOXICILLIN\CLAVULANATE POTASSIUM
     Indication: CELLULITIS
  42. VITAMIN K [Concomitant]
     Active Substance: PHYTONADIONE
     Indication: INTERNATIONAL NORMALISED RATIO INCREASED
     Dosage: 2 TABLET
     Route: 048
     Dates: start: 20140531, end: 20140531
  43. IMODIUM [Concomitant]
     Active Substance: LOPERAMIDE HYDROCHLORIDE
     Indication: DIARRHOEA
     Dosage: 400 MILLIGRAM
     Route: 048
     Dates: start: 20140603, end: 20140604
  44. POLYETHYLENE GLYCOL 3350. [Concomitant]
     Active Substance: POLYETHYLENE GLYCOL 3350
     Indication: CONSTIPATION
     Route: 048
     Dates: start: 20140206, end: 20140606
  45. VITAMIN K [Concomitant]
     Active Substance: PHYTONADIONE
     Route: 048
     Dates: start: 20140617, end: 20140617
  46. MICAFUNGIN SODIUM [Concomitant]
     Active Substance: MICAFUNGIN SODIUM
     Indication: ORAL FUNGAL INFECTION
     Dosage: 4 TABLET
     Route: 041
     Dates: start: 20140609, end: 20140609
  47. ZOFRAN [Concomitant]
     Active Substance: ONDANSETRON HYDROCHLORIDE
     Indication: NAUSEA
     Route: 041
     Dates: start: 20140602, end: 20140609
  48. MAXERAN [Concomitant]
     Active Substance: METOCLOPRAMIDE HYDROCHLORIDE
     Indication: NAUSEA
     Dosage: 10-20MG
     Route: 048
     Dates: start: 20140601, end: 20140609
  49. SENOKOT [Concomitant]
     Active Substance: SENNOSIDES
     Indication: CONSTIPATION
     Route: 048
     Dates: start: 20140609, end: 20140620

REACTIONS (3)
  - Atrial fibrillation [Recovered/Resolved]
  - Arthralgia [Recovered/Resolved]
  - Klebsiella sepsis [Recovered/Resolved]

NARRATIVE: CASE EVENT DATE: 20140529
